FAERS Safety Report 19202141 (Version 1)
Quarter: 2021Q2

REPORT INFORMATION
  Report Type: Report from Study
  Country: US (occurrence: US)
  Receive Date: 20210430
  Receipt Date: 20210430
  Transmission Date: 20210717
  Serious: Yes (Other)
  Sender: FDA-Public Use
  Company Number: US-TAKEDA-US202021063

PATIENT
  Age: 51 Year
  Sex: Female

DRUGS (1)
  1. CUVITRU [Suspect]
     Active Substance: HUMAN IMMUNOGLOBULIN G
     Indication: PRIMARY IMMUNODEFICIENCY SYNDROME
     Dosage: 2 GRAM, 5X A WEEK
     Route: 065

REACTIONS (3)
  - Sinus disorder [Unknown]
  - Kidney infection [Unknown]
  - Migraine [Unknown]

NARRATIVE: CASE EVENT DATE: 20200626
